FAERS Safety Report 25463748 (Version 1)
Quarter: 2025Q2

REPORT INFORMATION
  Report Type: Report from Study
  Country: US (occurrence: US)
  Receive Date: 20250621
  Receipt Date: 20250621
  Transmission Date: 20250717
  Serious: Yes (Hospitalization)
  Sender: ALEXION PHARMACEUTICALS
  Company Number: US-ASTRAZENECA-202506USA014921US

PATIENT
  Age: 89 Year

DRUGS (1)
  1. OLAPARIB [Suspect]
     Active Substance: OLAPARIB
     Indication: Ovarian cancer
     Dosage: 200 MILLIGRAM, BID

REACTIONS (3)
  - Dysstasia [Unknown]
  - Blood potassium abnormal [Unknown]
  - Renal disorder [Unknown]
